FAERS Safety Report 12248933 (Version 2)
Quarter: 2016Q2

REPORT INFORMATION
  Report Type: Spontaneous
  Country: US (occurrence: US)
  Receive Date: 20160408
  Receipt Date: 20160519
  Transmission Date: 20160815
  Serious: Yes (Hospitalization)
  Sender: FDA-Public Use
  Company Number: US-PERRIGO-16US014647

PATIENT
  Age: 77 Year
  Sex: Male
  Weight: 72.56 kg

DRUGS (3)
  1. ATORVASTATIN [Concomitant]
     Active Substance: ATORVASTATIN
     Indication: BLOOD CHOLESTEROL INCREASED
     Dosage: UNKNOWN, UNKNOWN
     Route: 065
     Dates: start: 2014
  2. ACETAMINOPHEN. [Suspect]
     Active Substance: ACETAMINOPHEN
     Dosage: 1000 MG, TID
     Dates: start: 20160321, end: 20160324
  3. ACETAMINOPHEN. [Suspect]
     Active Substance: ACETAMINOPHEN
     Indication: MYALGIA
     Dosage: 1000 MG, PRN
     Route: 048
     Dates: start: 2011, end: 20160320

REACTIONS (3)
  - Hepatic enzyme increased [Not Recovered/Not Resolved]
  - Drug effect decreased [Recovered/Resolved]
  - Jaundice [Unknown]

NARRATIVE: CASE EVENT DATE: 20160321
